FAERS Safety Report 21924034 (Version 1)
Quarter: 2023Q1

REPORT INFORMATION
  Report Type: Spontaneous
  Country: US (occurrence: US)
  Receive Date: 20230130
  Receipt Date: 20230130
  Transmission Date: 20230418
  Serious: No
  Sender: FDA-Public Use
  Company Number: US-UCBSA-2021061426

PATIENT
  Age: 32 Year
  Sex: Female

DRUGS (3)
  1. LEVETIRACETAM [Suspect]
     Active Substance: LEVETIRACETAM
     Indication: Post-anoxic myoclonus
     Dosage: 1 GRAM, 4X/DAY (QID)
  2. LEVETIRACETAM [Suspect]
     Active Substance: LEVETIRACETAM
     Indication: Off label use
  3. CLONAZEPAM [Concomitant]
     Active Substance: CLONAZEPAM
     Indication: Post-anoxic myoclonus
     Dosage: 0.75 MILLIGRAM, 3X/DAY (TID)

REACTIONS (1)
  - No adverse event [Unknown]
